FAERS Safety Report 23311618 (Version 1)
Quarter: 2023Q4

REPORT INFORMATION
  Report Type: Report from Study
  Country: DE (occurrence: DE)
  Receive Date: 20231219
  Receipt Date: 20231219
  Transmission Date: 20240109
  Serious: Yes (Hospitalization)
  Sender: FDA-Public Use
  Company Number: DE-CELLTRION INC.-2023DE023760

PATIENT

DRUGS (8)
  1. TRASTUZUMAB [Suspect]
     Active Substance: TRASTUZUMAB
     Indication: Breast cancer
     Dosage: 483 MG PER CYCLE, DRUG START DATE - 13/JUL/2023 ON 12/SEP/2023, RECEIVED LAST DOSE (357MG) OF DRUG P
     Route: 065
     Dates: start: 20230802
  2. PACLITAXEL [Suspect]
     Active Substance: PACLITAXEL
     Indication: Breast cancer
     Dosage: 138 MG, 1/WEEK WEEKLY, DRUG START DATE - 13/JUL/2023 ON 12/SEP/2023, RECEIVED LAST DOSE (132MG) OF D
     Route: 065
     Dates: start: 20230713
  3. PERJETA [Suspect]
     Active Substance: PERTUZUMAB
     Indication: Breast cancer
     Dosage: 840 MG FREQUENCY- PRO, DRUG START DATE - 13/JUL/2023 ON 12/SEP/2023, RECEIVED LAST DOSE (420MG) OF D
     Route: 065
     Dates: start: 20230802
  4. CARBOPLATIN [Suspect]
     Active Substance: CARBOPLATIN
     Indication: Breast cancer
     Dosage: 550 MG PER CYCLE, DRUG START DATE - 13/JUL/2023 ON 12/SEP/2023, RECEIVED LAST DOSE (580MG) OF DRUG P
     Route: 065
     Dates: start: 20230713
  5. LOPERAMIDE [Concomitant]
     Active Substance: LOPERAMIDE
     Dosage: UNK
     Dates: start: 20230720
  6. ZOFRAN [Concomitant]
     Active Substance: ONDANSETRON HYDROCHLORIDE
     Dosage: UNK
     Dates: start: 202307
  7. MCP [Concomitant]
     Active Substance: METOCLOPRAMIDE HYDROCHLORIDE
     Dosage: UNK
     Dates: start: 20230722
  8. CLOTRIMAZOLE [Concomitant]
     Active Substance: CLOTRIMAZOLE
     Dosage: UNK
     Dates: start: 20230808

REACTIONS (4)
  - General physical health deterioration [Recovered/Resolved]
  - Mucosal inflammation [Not Recovered/Not Resolved]
  - Stomatitis [Recovering/Resolving]
  - Diarrhoea [Recovering/Resolving]

NARRATIVE: CASE EVENT DATE: 20230801
